FAERS Safety Report 23665293 (Version 1)
Quarter: 2024Q1

REPORT INFORMATION
  Report Type: Spontaneous
  Country: JP (occurrence: JP)
  Receive Date: 20240322
  Receipt Date: 20240322
  Transmission Date: 20240409
  Serious: Yes (Other)
  Sender: FDA-Public Use
  Company Number: JP-Harrow Eye-2154702

PATIENT
  Age: 74 Year
  Sex: Male

DRUGS (1)
  1. TRIESENCE [Suspect]
     Active Substance: TRIAMCINOLONE ACETONIDE
     Indication: Eye inflammation
     Route: 047

REACTIONS (7)
  - Blindness [Recovering/Resolving]
  - Product use issue [Unknown]
  - Visual acuity reduced [Recovering/Resolving]
  - Vitreous opacities [Recovered/Resolved]
  - Vasculitis [Unknown]
  - Retinal artery occlusion [Unknown]
  - Peripheral artery occlusion [Unknown]
